FAERS Safety Report 23986628 (Version 1)
Quarter: 2024Q2

REPORT INFORMATION
  Report Type: Spontaneous
  Country: US (occurrence: None)
  Receive Date: 20240617
  Receipt Date: 20240617
  Transmission Date: 20240716
  Serious: Yes (Life-Threatening, Hospitalization, Disabling, Other)
  Sender: FDA-Public Use
  Company Number: None

PATIENT
  Age: 48 Year
  Sex: Female
  Weight: 80.1 kg

DRUGS (7)
  1. LARIN 1/20 [Suspect]
     Active Substance: ETHINYL ESTRADIOL\NORETHINDRONE ACETATE
     Indication: Menstrual cycle management
     Dosage: OTHER QUANTITY : 1 TABLET(S);?FREQUENCY : AT BEDTIME;?
     Route: 048
     Dates: start: 20240304, end: 20240609
  2. SYNTHROID [Concomitant]
  3. Pantaprazole [Concomitant]
  4. MOMETASONE [Concomitant]
     Active Substance: MOMETASONE
  5. Albutrol [Concomitant]
  6. CULTURELLE [Concomitant]
  7. PROBIOTICS NOS [Concomitant]
     Active Substance: PROBIOTICS NOS

REACTIONS (2)
  - Pulmonary embolism [None]
  - Loss of consciousness [None]

NARRATIVE: CASE EVENT DATE: 20240609
